FAERS Safety Report 9919496 (Version 2)
Quarter: 2014Q1

REPORT INFORMATION
  Report Type: Report from Study
  Country: US (occurrence: US)
  Receive Date: 20140224
  Receipt Date: 20140325
  Transmission Date: 20141002
  Serious: Yes (Death, Hospitalization, Other)
  Sender: FDA-Public Use
  Company Number: US-ACTELION-A-US2014-94969

PATIENT
  Age: 4 Year
  Sex: Male

DRUGS (2)
  1. TRACLEER [Suspect]
     Indication: PULMONARY HYPERTENSION
     Dosage: UNK
     Route: 048
     Dates: end: 20140302
  2. SILDENAFIL [Concomitant]

REACTIONS (4)
  - Pulmonary hypertensive crisis [Fatal]
  - Pulmonary haemorrhage [Fatal]
  - Eosinophilia [Unknown]
  - Bone marrow transplant [Unknown]
